FAERS Safety Report 13535177 (Version 1)
Quarter: 2017Q2

REPORT INFORMATION
  Report Type: Spontaneous
  Country: US (occurrence: US)
  Receive Date: 20170510
  Receipt Date: 20170510
  Transmission Date: 20170830
  Serious: Yes (Other)
  Sender: FDA-Public Use
  Company Number: None

PATIENT
  Age: 32 Year
  Sex: Female
  Weight: 128.2 kg

DRUGS (19)
  1. TRAMADOL. [Concomitant]
     Active Substance: TRAMADOL
  2. MICROGESTIN [Concomitant]
     Active Substance: ETHINYL ESTRADIOL\NORETHINDRONE ACETATE
  3. HYDROXYZINE [Concomitant]
     Active Substance: HYDROXYZINE HYDROCHLORIDE
  4. ACETAMINOPHEN. [Concomitant]
     Active Substance: ACETAMINOPHEN
  5. DILTIAZEM. [Concomitant]
     Active Substance: DILTIAZEM
  6. PROTONIX [Concomitant]
     Active Substance: PANTOPRAZOLE SODIUM
  7. TUMS [Concomitant]
     Active Substance: CALCIUM CARBONATE
  8. BACLOFEN. [Concomitant]
     Active Substance: BACLOFEN
  9. NARATRIPTAN [Concomitant]
     Active Substance: NARATRIPTAN HYDROCHLORIDE
  10. LYRICA [Concomitant]
     Active Substance: PREGABALIN
  11. LIDOCANINE HYDROCHLORIDE EPINEPHRINE SUNSTAR [Concomitant]
     Active Substance: EPINEPHRINE\LIDOCAINE HYDROCHLORIDE
  12. ROLAIDS [Concomitant]
     Active Substance: CALCIUM CARBONATE\MAGNESIUM HYDROXIDE
  13. BUTRANS [Suspect]
     Active Substance: BUPRENORPHINE
     Indication: PAIN
     Dosage: ?          OTHER STRENGTH:MCG;QUANTITY:1 PATCH(ES);OTHER FREQUENCY:1 PATCH WEEKLY;?
     Route: 062
     Dates: start: 20170501, end: 20170509
  14. LORATIDINE-D [Concomitant]
  15. TOPIRIMATE [Concomitant]
  16. ZOFRAN [Concomitant]
     Active Substance: ONDANSETRON HYDROCHLORIDE
  17. METCLOPROMIDE [Concomitant]
  18. PREVIDENT [Concomitant]
     Active Substance: SODIUM FLUORIDE
  19. DOXEPIN [Concomitant]
     Active Substance: DOXEPIN

REACTIONS (3)
  - Application site swelling [None]
  - Application site burn [None]
  - Chemical burn [None]

NARRATIVE: CASE EVENT DATE: 20170509
